FAERS Safety Report 16567746 (Version 1)
Quarter: 2019Q3

REPORT INFORMATION
  Report Type: Spontaneous
  Country: IL (occurrence: IL)
  Receive Date: 20190712
  Receipt Date: 20190712
  Transmission Date: 20191004
  Serious: Yes (Hospitalization, Other)
  Sender: FDA-Public Use
  Company Number: IL-NAPPMUNDI-GBR-2019-0067931

PATIENT
  Sex: Female

DRUGS (2)
  1. BUTRANS [Suspect]
     Active Substance: BUPRENORPHINE
     Indication: PRODUCT USED FOR UNKNOWN INDICATION
     Dosage: 20 MCG, Q1H (TWO PATCHES WERE APPLIED), STRENGTH 10MG
     Route: 062
     Dates: start: 20190628, end: 20190702
  2. BUTRANS [Suspect]
     Active Substance: BUPRENORPHINE
     Dosage: 10 MCG, Q1H, STRENGTH 10MG
     Route: 062
     Dates: start: 20190621

REACTIONS (4)
  - Drug titration error [Unknown]
  - Pulmonary oedema [Unknown]
  - Altered state of consciousness [Recovering/Resolving]
  - Altered state of consciousness [Unknown]

NARRATIVE: CASE EVENT DATE: 20190630
